FAERS Safety Report 10459394 (Version 1)
Quarter: 2014Q3

REPORT INFORMATION
  Report Type: Spontaneous
  Country: US (occurrence: None)
  Receive Date: 20140915
  Receipt Date: 20140915
  Transmission Date: 20150326
  Serious: Yes (Hospitalization)
  Sender: FDA-Public Use
  Company Number: 2014SCAL000091

PATIENT
  Age: 80 Year
  Sex: Female

DRUGS (1)
  1. RIVASTIGMINE TARTRATE. [Suspect]
     Active Substance: RIVASTIGMINE TARTRATE
     Indication: DEMENTIA
     Dosage: NINE 5CM (2) PATCHES

REACTIONS (12)
  - Dizziness [None]
  - Excessive eye blinking [None]
  - Diarrhoea [None]
  - Overdose [None]
  - Hyperhidrosis [None]
  - Myalgia [None]
  - Miosis [None]
  - Muscle contractions involuntary [None]
  - Vomiting [None]
  - Toxicity to various agents [None]
  - Confusional state [None]
  - Tongue movement disturbance [None]
